FAERS Safety Report 14412168 (Version 1)
Quarter: 2018Q1

REPORT INFORMATION
  Report Type: Spontaneous
  Country: US (occurrence: US)
  Receive Date: 20180117
  Receipt Date: 20180117
  Transmission Date: 20180509
  Serious: Yes (Other)
  Sender: FDA-Public Use
  Company Number: None

PATIENT
  Age: 44 Year
  Sex: Male
  Weight: 80.1 kg

DRUGS (3)
  1. VIT C AND MINERAL MIX [Concomitant]
  2. MESALAMINE DELAYED-RELEASE TABLETS 1.2 G PER TABLET [Suspect]
     Active Substance: MESALAMINE
     Indication: COLITIS
     Dosage: ?          QUANTITY:4 TABLET(S);?
     Route: 048
     Dates: start: 20180103, end: 20180111
  3. VITAMIN C [Concomitant]
     Active Substance: ASCORBIC ACID

REACTIONS (3)
  - Urine odour abnormal [None]
  - Chromaturia [None]
  - Product quality issue [None]

NARRATIVE: CASE EVENT DATE: 20180103
